FAERS Safety Report 4300937-8 (Version None)
Quarter: 2004Q1

REPORT INFORMATION
  Report Type: 
  Country: None (occurrence: None)
  Receive Date: 20040219
  Receipt Date: 20040121
  Transmission Date: 20041129
  Serious: Yes (Disabling)
  Sender: FDA-Public Use
  Company Number: 2004SE00287

PATIENT
  Age: 55 Year
  Sex: Female
  Weight: 67 kg

DRUGS (6)
  1. BLOPRESS [Suspect]
     Indication: HYPERTENSION
     Dosage: 4 MG DAILY PO
     Dates: start: 20021015, end: 20030521
  2. ANTIHYPERTENSIVES [Concomitant]
  3. ACE INHIBITOR NOS [Concomitant]
  4. ALPHA GLUCOSIDASE INHIBITORS [Concomitant]
  5. ORAL ANTIDIABETICS [Concomitant]
  6. CALCIUM CHANNEL BLOCKERS [Concomitant]

REACTIONS (1)
  - PHARYNGEAL OEDEMA [None]
